FAERS Safety Report 7084182-1 (Version None)
Quarter: 2010Q4

REPORT INFORMATION
  Report Type: 
  Country: None (occurrence: None)
  Receive Date: 20101026
  Receipt Date: 20101019
  Transmission Date: 20110411
  Serious: Yes (Hospitalization, Other)
  Sender: FDA-Public Use
  Company Number: 2010AC000547

PATIENT
  Age: 74 Year
  Sex: Female
  Weight: 90.7194 kg

DRUGS (22)
  1. DIGOXIN [Suspect]
     Dosage: 0.125 MG; QD; PO
     Route: 048
     Dates: start: 20070724, end: 20080410
  2. ASPIRIN [Concomitant]
  3. ISOSORBIDE DINITRATE [Concomitant]
  4. GEMFIBROZIL [Concomitant]
  5. PRILOSEC [Concomitant]
  6. ATENOLOL [Concomitant]
  7. TRIAMTERENE AND HYDROCHLOROTHIAZIDE [Concomitant]
  8. LIPITOR [Concomitant]
  9. PREMARIN [Concomitant]
  10. CARDIZEM [Concomitant]
  11. AMIODARONE [Concomitant]
  12. COUMADIN [Concomitant]
  13. IMDUR [Concomitant]
  14. ZESTRIL [Concomitant]
  15. MAGNESIUM [Concomitant]
  16. LEVAQUIN [Concomitant]
  17. VALIUM [Concomitant]
  18. HYDROCODONE [Concomitant]
  19. TRICOR [Concomitant]
  20. BACTRIM [Concomitant]
  21. ALBUTEROL INHALER [Concomitant]
  22. NEBLIZERS [Concomitant]

REACTIONS (19)
  - ANXIETY [None]
  - ATRIAL FIBRILLATION [None]
  - BLOOD CHOLESTEROL INCREASED [None]
  - BLOOD TRIGLYCERIDES INCREASED [None]
  - BREAST CANCER IN SITU [None]
  - BRONCHITIS [None]
  - CARDIOACTIVE DRUG LEVEL INCREASED [None]
  - CHEST PAIN [None]
  - CHRONIC OBSTRUCTIVE PULMONARY DISEASE [None]
  - COUGH [None]
  - DEPRESSION [None]
  - DIARRHOEA [None]
  - DIZZINESS [None]
  - INTERNATIONAL NORMALISED RATIO INCREASED [None]
  - NAUSEA [None]
  - RENAL FAILURE ACUTE [None]
  - SINUS BRADYCARDIA [None]
  - UPPER RESPIRATORY TRACT INFECTION [None]
  - VOMITING [None]
